FAERS Safety Report 21205116 (Version 10)
Quarter: 2025Q3

REPORT INFORMATION
  Report Type: Spontaneous
  Country: CA (occurrence: CA)
  Receive Date: 20220812
  Receipt Date: 20250910
  Transmission Date: 20251021
  Serious: Yes (Hospitalization, Other)
  Sender: AUROBINDO
  Company Number: CA-AUROBINDO-AUR-APL-2022-031841

PATIENT
  Age: 53 Year
  Sex: Female

DRUGS (43)
  1. PROGESTERONE [Interacting]
     Active Substance: PROGESTERONE
     Indication: Product used for unknown indication
     Dosage: 100 MILLIGRAM, ONCE A DAY
     Route: 048
  2. PROGESTERONE [Interacting]
     Active Substance: PROGESTERONE
     Dosage: 100 MILLIGRAM, ONCE A DAY
     Route: 030
  3. PROGESTERONE [Interacting]
     Active Substance: PROGESTERONE
     Route: 048
  4. VENLAFAXINE [Interacting]
     Active Substance: VENLAFAXINE HYDROCHLORIDE
     Indication: Product used for unknown indication
     Route: 065
  5. VENLAFAXINE [Interacting]
     Active Substance: VENLAFAXINE HYDROCHLORIDE
     Route: 065
  6. VENLAFAXINE [Interacting]
     Active Substance: VENLAFAXINE HYDROCHLORIDE
     Route: 065
  7. AMINO ACIDS [Suspect]
     Active Substance: AMINO ACIDS
     Indication: Product used for unknown indication
     Dosage: 2 DOSAGE FORM, TWO TIMES A DAY
     Route: 048
  8. PROBIOTICS NOS [Suspect]
     Active Substance: PROBIOTICS NOS
     Indication: Product used for unknown indication
     Route: 048
  9. PROBIOTICS NOS [Suspect]
     Active Substance: PROBIOTICS NOS
     Route: 065
  10. PROBIOTICS NOS [Suspect]
     Active Substance: PROBIOTICS NOS
     Dosage: 1 DOSAGE FORM, 3 TIMES A DAY
     Route: 048
  11. BIFIDOBACTERIUM LONGUM [Suspect]
     Active Substance: BIFIDOBACTERIUM LONGUM
     Indication: Product used for unknown indication
     Route: 048
  12. BUDESONIDE\FORMOTEROL [Suspect]
     Active Substance: BUDESONIDE\FORMOTEROL
     Indication: Product used for unknown indication
     Dosage: 200 MICROGRAM, TWO TIMES A DAY
     Route: 065
  13. BUDESONIDE\FORMOTEROL [Suspect]
     Active Substance: BUDESONIDE\FORMOTEROL
     Dosage: 6 MICROGRAM, TWO TIMES A DAY
     Route: 065
  14. BUDESONIDE\FORMOTEROL [Suspect]
     Active Substance: BUDESONIDE\FORMOTEROL
     Dosage: 1 DOSAGE FORM, TWO TIMES A DAY
     Route: 065
  15. BUDESONIDE\FORMOTEROL [Suspect]
     Active Substance: BUDESONIDE\FORMOTEROL
     Dosage: 2 MICROGRAM, TWO TIMES A DAY
     Route: 065
  16. DOCONEXENT [Suspect]
     Active Substance: DOCONEXENT
     Indication: Product used for unknown indication
     Dosage: 120 MILLIGRAM, TWO TIMES A DAY
     Route: 048
  17. ICOSAPENT [Suspect]
     Active Substance: ICOSAPENT
     Indication: Product used for unknown indication
     Dosage: 180 MILLIGRAM, TWO TIMES A DAY
     Route: 048
  18. ERGOCALCIFEROL [Suspect]
     Active Substance: ERGOCALCIFEROL
     Indication: Product used for unknown indication
     Dosage: 1000 INTERNATIONAL UNIT, ONCE A DAY
     Route: 048
  19. ESTRADIOL [Suspect]
     Active Substance: ESTRADIOL
     Indication: Product used for unknown indication
     Dosage: 50 MICROGRAM, ONCE A DAY, CHANGED EVERY 2 WEEKS,
     Route: 062
  20. ESTRADIOL [Suspect]
     Active Substance: ESTRADIOL
     Route: 062
  21. FISH OIL [Suspect]
     Active Substance: FISH OIL
     Indication: Product used for unknown indication
     Dosage: UNK UNK, TWO TIMES A DAY
     Route: 048
  22. LACTOBACILLUS ACIDOPHILUS [Suspect]
     Active Substance: LACTOBACILLUS ACIDOPHILUS
     Indication: Product used for unknown indication
     Dosage: UNK UNK, 3 TIMES A DAY
     Route: 048
  23. LINOLEIC ACID [Suspect]
     Active Substance: LINOLEIC ACID
     Indication: Product used for unknown indication
     Dosage: 1 DOSAGE FORM, 3 TIMES A DAY
     Route: 048
  24. LORAZEPAM [Suspect]
     Active Substance: LORAZEPAM
     Indication: Product used for unknown indication
     Dosage: 1 MILLIGRAM, ONCE A DAY
     Route: 048
  25. DIMETHYL SULFONE [Suspect]
     Active Substance: DIMETHYL SULFONE
     Indication: Product used for unknown indication
     Route: 065
  26. DIMETHYL SULFONE [Suspect]
     Active Substance: DIMETHYL SULFONE
     Indication: Product used for unknown indication
     Dosage: 1000 MILLIGRAM, 3 TIMES A DAY
     Route: 065
  27. SOMATROPIN [Suspect]
     Active Substance: SOMATROPIN
     Indication: Product used for unknown indication
     Route: 062
  28. THIOCTIC ACID [Suspect]
     Active Substance: THIOCTIC ACID
     Indication: Product used for unknown indication
     Dosage: 3.75 MILLIGRAM, ONCE A DAY
     Route: 065
  29. UBIDECARENONE [Suspect]
     Active Substance: UBIDECARENONE
     Indication: Product used for unknown indication
     Route: 048
  30. VARENICLINE [Suspect]
     Active Substance: VARENICLINE
     Indication: Product used for unknown indication
     Dosage: 0.5 MILLIGRAM, ONCE A DAY
     Route: 065
  31. VARENICLINE [Suspect]
     Active Substance: VARENICLINE
     Dosage: 1 MILLIGRAM, TWO TIMES A DAY
     Route: 065
  32. VARENICLINE [Suspect]
     Active Substance: VARENICLINE
     Route: 065
  33. VITAMIN A [Suspect]
     Active Substance: VITAMIN A
     Indication: Product used for unknown indication
     Dosage: 188 MICROGRAM, TWO TIMES A DAY (TWO CAPSULES )
     Route: 048
  34. ASCORBIC ACID [Suspect]
     Active Substance: ASCORBIC ACID
     Indication: Product used for unknown indication
     Dosage: 15 MILLIGRAM, TWO TIMES A DAY
     Route: 048
  35. VITAMIN D [Suspect]
     Active Substance: VITAMIN D NOS
     Indication: Product used for unknown indication
     Dosage: 1000 INTERNATIONAL UNIT, ONCE A DAY
     Route: 048
  36. VITAMIN E [Suspect]
     Active Substance: .ALPHA.-TOCOPHEROL
     Indication: Product used for unknown indication
     Route: 048
  37. VITAMINS NOS [Suspect]
     Active Substance: VITAMINS
     Indication: Product used for unknown indication
     Dosage: 1 DOSAGE FORM, TWO TIMES A DAY
     Route: 048
  38. VITAMIN C [Suspect]
     Active Substance: ASCORBIC ACID
     Indication: Product used for unknown indication
     Dosage: 15 MILLIGRAM, TWO TIMES A DAY
     Route: 048
  39. TOCOPHEROL [Suspect]
     Active Substance: TOCOPHEROL
     Indication: Product used for unknown indication
     Route: 065
  40. .ALPHA.-TOCOPHEROL [Suspect]
     Active Substance: .ALPHA.-TOCOPHEROL
     Indication: Product used for unknown indication
     Route: 065
  41. ALCOHOL [Suspect]
     Active Substance: ALCOHOL
     Indication: Product used for unknown indication
     Route: 065
  42. OMEGA-3 ACIDS [Suspect]
     Active Substance: OMEGA-3 FATTY ACIDS
     Indication: Product used for unknown indication
     Dosage: 1 DOSAGE FORM, TWO TIMES A DAY
     Route: 048
  43. OMEGA-3 ACIDS [Suspect]
     Active Substance: OMEGA-3 FATTY ACIDS
     Route: 065

REACTIONS (6)
  - Drug-induced liver injury [Recovering/Resolving]
  - Hepatic cirrhosis [Recovered/Resolved]
  - Hepatic encephalopathy [Recovered/Resolved]
  - Hepatic necrosis [Recovering/Resolving]
  - Hepatotoxicity [Recovering/Resolving]
  - Drug interaction [Recovering/Resolving]
